FAERS Safety Report 7993607-6 (Version None)
Quarter: 2011Q4

REPORT INFORMATION
  Report Type: 
  Country: None (occurrence: None)
  Receive Date: 20111219
  Receipt Date: 20111214
  Transmission Date: 20120403
  Serious: Yes (Other)
  Sender: FDA-Public Use
  Company Number: DE-ROCHE-1015403

PATIENT
  Age: 76 Year
  Sex: Female
  Weight: 68 kg

DRUGS (6)
  1. BONIVA [Suspect]
     Indication: OSTEOPOROSIS POSTMENOPAUSAL
     Route: 042
     Dates: start: 20100608
  2. BONIVA [Suspect]
     Dates: start: 20110811
  3. BONIVA [Suspect]
     Dates: start: 20110127
  4. BONIVA [Suspect]
     Dates: start: 20110426
  5. BONIVA [Suspect]
     Dates: start: 20100907
  6. BONIVA [Suspect]
     Dates: start: 20111110

REACTIONS (2)
  - FRACTURE [None]
  - HUMERUS FRACTURE [None]
